FAERS Safety Report 9395472 (Version 1)
Quarter: 2013Q3

REPORT INFORMATION
  Report Type: Spontaneous
  Country: FR (occurrence: FR)
  Receive Date: 20130711
  Receipt Date: 20130711
  Transmission Date: 20140515
  Serious: Yes (Other)
  Sender: FDA-Public Use
  Company Number: FR-SANOFI-AVENTIS-2013SA069086

PATIENT
  Age: 24 Year
  Sex: Female

DRUGS (1)
  1. LOVENOX [Suspect]
     Indication: CAVERNOUS SINUS THROMBOSIS
     Route: 058
     Dates: start: 201305

REACTIONS (1)
  - Neutropenia [Not Recovered/Not Resolved]
